FAERS Safety Report 10022426 (Version 1)
Quarter: 2014Q1

REPORT INFORMATION
  Report Type: Spontaneous
  Country: NO (occurrence: NO)
  Receive Date: 20140319
  Receipt Date: 20140319
  Transmission Date: 20141002
  Serious: Yes (Hospitalization)
  Sender: FDA-Public Use
  Company Number: NO-PFIZER INC-2014076040

PATIENT
  Age: 65 Year
  Sex: Female

DRUGS (7)
  1. DOSTINEX [Suspect]
     Indication: HYPOPITUITARISM
     Dosage: 0.5 MG, WEEKLY
     Dates: start: 2012
  2. SANDOSTATIN [Suspect]
     Indication: HYPOPITUITARISM
     Dosage: 30 MG, MONTHLY
     Route: 051
     Dates: start: 2004
  3. CO VALS [Concomitant]
     Indication: HYPERTENSION
     Dosage: 160/25, 1 X 1
  4. CARDIZEM UNOTARD [Concomitant]
     Indication: HYPERTENSION
     Dosage: 240 MG, 1X/DAY
     Dates: start: 2001
  5. CORTEF [Concomitant]
     Indication: ADDISON^S DISEASE
     Dosage: 5 MG, 3+2+2
  6. LEVAXIN [Concomitant]
     Indication: HYPOTHYROIDISM
     Dosage: 125 UG, 1X/DAY
  7. TELFAST [Concomitant]
     Dosage: 120 MG, 1X/DAY

REACTIONS (2)
  - Pulmonary embolism [Unknown]
  - Cor pulmonale [Unknown]
